FAERS Safety Report 24061029 (Version 2)
Quarter: 2024Q3

REPORT INFORMATION
  Report Type: Spontaneous
  Country: US (occurrence: US)
  Receive Date: 20240708
  Receipt Date: 20240710
  Transmission Date: 20241016
  Serious: No
  Sender: BRISTOL MYERS SQUIBB
  Company Number: US-BRISTOL-MYERS SQUIBB COMPANY-2024-108057

PATIENT
  Age: 68 Year
  Sex: Female
  Weight: 58.42 kg

DRUGS (15)
  1. REVLIMID [Suspect]
     Active Substance: LENALIDOMIDE
     Indication: Plasma cell myeloma
     Dosage: FREQ: DAILY X 21 DAYS
     Route: 048
     Dates: start: 20230728, end: 20240626
  2. POTASSIUM CHLORIDE [Concomitant]
     Active Substance: POTASSIUM CHLORIDE
     Indication: Product used for unknown indication
  3. ACYCLOVIR [Concomitant]
     Active Substance: ACYCLOVIR
     Indication: Product used for unknown indication
  4. ESTRADIOL [ESTRADIOL CIPIONATE] [Concomitant]
     Indication: Product used for unknown indication
  5. EZETIMIBE [Concomitant]
     Active Substance: EZETIMIBE
     Indication: Product used for unknown indication
  6. OLMESARTAN MEDOXOMILA + HIDROCLOROTIAZIDA [Concomitant]
     Indication: Product used for unknown indication
     Dosage: OLMESARTAN MEDOX/HCTZ 20-12.5MG TAB
  7. OMEPRAZOLE [Concomitant]
     Active Substance: OMEPRAZOLE
     Indication: Product used for unknown indication
  8. OMEPRAZOLE [Concomitant]
     Active Substance: OMEPRAZOLE
  9. BIFIDOBACTERIUM ANIMALIS LACTIS [Concomitant]
     Active Substance: BIFIDOBACTERIUM ANIMALIS LACTIS
     Indication: Product used for unknown indication
     Dosage: PROBIOTIC 4X TABLETS
  10. VITAMIN D3 OL [Concomitant]
     Indication: Product used for unknown indication
     Dosage: VITAMIN D3 5,000 IU (CHOLE) TAB
  11. ZINC [ZINC SULFATE MONOHYDRATE] [Concomitant]
     Indication: Product used for unknown indication
     Dosage: ZINC 30MG TABLETS N/M
  12. DARZALEX FASPRO [Concomitant]
     Active Substance: DARATUMUMAB\HYALURONIDASE-FIHJ
     Indication: Product used for unknown indication
  13. DARZALEX FASPRO [Concomitant]
     Active Substance: DARATUMUMAB\HYALURONIDASE-FIHJ
     Dosage: DARZALEX FASPRO SOLUTION 15ML
  14. ASPIRIN [Concomitant]
     Active Substance: ASPIRIN
     Indication: Product used for unknown indication
     Dosage: ASPIRIN 325MG EC TABLETS
  15. DEXAMETHASONE [Concomitant]
     Active Substance: DEXAMETHASONE
     Indication: Product used for unknown indication

REACTIONS (2)
  - Bronchitis [Unknown]
  - Pharyngitis streptococcal [Unknown]

NARRATIVE: CASE EVENT DATE: 20240626
